FAERS Safety Report 9511052 (Version 1)
Quarter: 2013Q1

REPORT INFORMATION
  Report Type: Spontaneous
  Country: US (occurrence: None)
  Receive Date: 20130305
  Receipt Date: 20130305
  Transmission Date: 20140127
  Serious: Yes (Other)
  Sender: FDA-Public Use
  Company Number: 163-21880-12021239

PATIENT
  Age: 65 Year
  Sex: Male

DRUGS (2)
  1. REVLIMID (LENALIDOMIDE) (CAPSULES) [Suspect]
     Indication: MYELODYSPLASTIC SYNDROME
     Dosage: DAYS 1-28
     Route: 048
     Dates: start: 20120201, end: 20120206
  2. PREDNISONE [Concomitant]

REACTIONS (3)
  - Hypersensitivity [None]
  - Rash [None]
  - Oedema peripheral [None]
